FAERS Safety Report 9606341 (Version 1)
Quarter: 2013Q4

REPORT INFORMATION
  Report Type: Spontaneous
  Country: US (occurrence: US)
  Receive Date: 20131008
  Receipt Date: 20131008
  Transmission Date: 20140711
  Serious: No
  Sender: FDA-Public Use
  Company Number: US-AMGEN-USASP2013049013

PATIENT
  Age: 82 Year
  Sex: Female

DRUGS (5)
  1. PROLIA [Suspect]
     Indication: OSTEOPOROSIS
  2. ALLEGRA [Concomitant]
     Indication: SINUS DISORDER
     Dosage: UNK UNK, QD
  3. VITAMIN B [Concomitant]
  4. CITRACAL PLUS [Concomitant]
     Dosage: UNK UNK, QD
  5. MULTIVITAMIN                       /00097801/ [Concomitant]

REACTIONS (2)
  - Device failure [Unknown]
  - Tooth fracture [Unknown]
